FAERS Safety Report 10047339 (Version 2)
Quarter: 2014Q2

REPORT INFORMATION
  Report Type: Spontaneous
  Country: DE (occurrence: DE)
  Receive Date: 20140331
  Receipt Date: 20140418
  Transmission Date: 20141212
  Serious: Yes (Hospitalization)
  Sender: FDA-Public Use
  Company Number: DE-JNJFOC-20140314181

PATIENT
  Age: 85 Year
  Sex: Female
  Weight: 65 kg

DRUGS (9)
  1. XARELTO [Suspect]
     Indication: CEREBROVASCULAR ACCIDENT PROPHYLAXIS
     Route: 048
  2. XARELTO [Suspect]
     Indication: ATRIAL FIBRILLATION
     Route: 048
  3. XIPAMIDE [Concomitant]
     Indication: OEDEMA
     Route: 048
  4. MEMANTINE [Concomitant]
     Indication: DEMENTIA
     Route: 048
  5. CARMEN [Concomitant]
     Indication: HYPERTENSION
     Route: 065
  6. AMARYL [Concomitant]
     Indication: DIABETES MELLITUS
     Route: 048
  7. METOBETA [Concomitant]
     Indication: HYPERTENSION
     Route: 048
  8. RAMIPRIL [Concomitant]
     Indication: HYPERTENSION
     Dosage: 5/25MG
     Route: 048
  9. MEMANTINE HYDROCHLORIDE [Concomitant]
     Indication: DEMENTIA
     Dosage: 5/25MG
     Route: 048

REACTIONS (3)
  - Coagulopathy [Recovering/Resolving]
  - Increased tendency to bruise [Not Recovered/Not Resolved]
  - Haemarthrosis [Not Recovered/Not Resolved]
